FAERS Safety Report 19007089 (Version 1)
Quarter: 2021Q1

REPORT INFORMATION
  Report Type: Spontaneous
  Country: US (occurrence: US)
  Receive Date: 20210313
  Receipt Date: 20210313
  Transmission Date: 20210420
  Serious: Yes (Hospitalization, Disabling)
  Sender: FDA-Public Use
  Company Number: None

PATIENT
  Age: 55 Year
  Sex: Male
  Weight: 77.4 kg

DRUGS (2)
  1. FISH OILS [Concomitant]
  2. ATORVASTATIN 40 MG [Suspect]
     Active Substance: ATORVASTATIN
     Indication: BLOOD CHOLESTEROL INCREASED
     Dosage: ?          QUANTITY:30 TABLET(S);?
     Route: 048

REACTIONS (4)
  - Adverse drug reaction [None]
  - Myositis [None]
  - Myopathy [None]
  - Gait inability [None]

NARRATIVE: CASE EVENT DATE: 20210225
